FAERS Safety Report 12940800 (Version 2)
Quarter: 2018Q3

REPORT INFORMATION
  Report Type: Report from Study
  Country: US (occurrence: US)
  Receive Date: 20161115
  Receipt Date: 20180814
  Transmission Date: 20181010
  Serious: Yes (Other)
  Sender: FDA-Public Use
  Company Number: US-ROCHE-1852677

PATIENT
  Age: 43 Year
  Sex: Female

DRUGS (1)
  1. PIRFENIDONE. [Suspect]
     Active Substance: PIRFENIDONE
     Indication: HERMANSKY-PUDLAK SYNDROME
     Route: 065

REACTIONS (2)
  - Ear infection [Recovered/Resolved]
  - Vertigo [Recovered/Resolved]
